FAERS Safety Report 4779062-8 (Version None)
Quarter: 2005Q3

REPORT INFORMATION
  Report Type: 
  Country: None (occurrence: None)
  Receive Date: 20050923
  Receipt Date: 20050915
  Transmission Date: 20060218
  Serious: Yes (Hospitalization)
  Sender: FDA-Public Use
  Company Number: 2005-09-0810

PATIENT
  Age: 55 Year
  Sex: Female

DRUGS (2)
  1. TEMODAL [Suspect]
     Indication: GLIOBLASTOMA
  2. PARACETAMOL [Concomitant]

REACTIONS (1)
  - HEPATITIS CHOLESTATIC [None]
